FAERS Safety Report 7931277-3 (Version None)
Quarter: 2011Q4

REPORT INFORMATION
  Report Type: 
  Country: None (occurrence: None)
  Receive Date: 20111121
  Receipt Date: 20111110
  Transmission Date: 20120403
  Serious: Yes (Other)
  Sender: FDA-Public Use
  Company Number: US-BAYER-2010-008432

PATIENT
  Age: 24 Year
  Sex: Female
  Weight: 40.816 kg

DRUGS (6)
  1. ASPIRIN [Concomitant]
     Dosage: UNK
     Dates: start: 20000101
  2. MIRENA [Concomitant]
     Dosage: UNK
     Dates: start: 20080501
  3. HYOSCYAMINE [Concomitant]
  4. YAZ [Suspect]
     Dosage: 1 DF, UNK
     Route: 048
     Dates: start: 20061001, end: 20080501
  5. IMITREX [Concomitant]
     Dosage: UNK
     Dates: start: 20060101
  6. NAPROXEN [Concomitant]
     Dosage: UNK
     Dates: start: 20080101

REACTIONS (5)
  - ANXIETY [None]
  - GALLBLADDER DISORDER [None]
  - INJURY [None]
  - GALLBLADDER POLYP [None]
  - PAIN [None]
